FAERS Safety Report 9343307 (Version 1)
Quarter: 2013Q2

REPORT INFORMATION
  Report Type: Spontaneous
  Country: JP (occurrence: JP)
  Receive Date: 20130612
  Receipt Date: 20130612
  Transmission Date: 20140414
  Serious: Yes (Hospitalization)
  Sender: FDA-Public Use
  Company Number: JP-ASTRAZENECA-2013SE41050

PATIENT
  Age: 82 Year
  Sex: Male
  Weight: 40 kg

DRUGS (5)
  1. NEXIUM [Suspect]
     Route: 048
     Dates: start: 20130424, end: 20130520
  2. CRAVIT [Concomitant]
     Indication: HAEMOPHILUS INFECTION
     Route: 048
     Dates: start: 20130511, end: 20130515
  3. PLAVIX [Concomitant]
     Dosage: DOSE UNKNOWN
     Route: 065
  4. CALONAL [Concomitant]
     Dosage: DOSE UNKNOWN
     Route: 065
  5. CLARITH [Concomitant]
     Dosage: DOSE UNKNOWN
     Route: 065
     Dates: end: 20130510

REACTIONS (1)
  - Liver disorder [Recovering/Resolving]
